FAERS Safety Report 4987868-5 (Version None)
Quarter: 2006Q2

REPORT INFORMATION
  Report Type: 
  Country: None (occurrence: None)
  Receive Date: 20060424
  Receipt Date: 20060406
  Transmission Date: 20061013
  Serious: Yes (Other)
  Sender: FDA-Public Use
  Company Number: 8016222

PATIENT
  Sex: Male

DRUGS (4)
  1. KEPPRA [Suspect]
     Indication: EPILEPSY
     Dosage: 250 MG /D PO
     Route: 048
     Dates: start: 20060313
  2. DIBRO-BE MONO [Concomitant]
  3. STRATTERA [Concomitant]
  4. RISPERDAL [Concomitant]

REACTIONS (4)
  - ANGER [None]
  - HALLUCINATION [None]
  - PERSEVERATION [None]
  - PSYCHOTIC DISORDER [None]
